FAERS Safety Report 23001922 (Version 2)
Quarter: 2023Q4

REPORT INFORMATION
  Report Type: Spontaneous
  Country: CH (occurrence: CH)
  Receive Date: 20230928
  Receipt Date: 20231009
  Transmission Date: 20240110
  Serious: Yes (Death, Life-Threatening, Hospitalization)
  Sender: FDA-Public Use
  Company Number: CH-TEVA-2023-CH-2929856

PATIENT
  Age: 57 Year
  Sex: Female

DRUGS (7)
  1. HYDROCORTISONE [Suspect]
     Active Substance: HYDROCORTISONE
     Indication: Acute myeloid leukaemia
     Route: 037
     Dates: start: 20210721
  2. METHOTREXATE [Suspect]
     Active Substance: METHOTREXATE
     Indication: Acute myeloid leukaemia
     Route: 037
     Dates: start: 20210721
  3. CYTARABINE [Suspect]
     Active Substance: CYTARABINE
     Indication: Acute myeloid leukaemia
     Route: 037
     Dates: start: 20210721
  4. CYTARABINE [Suspect]
     Active Substance: CYTARABINE
     Dosage: SYSTEMIC THERAPY ON DAY 1-DAY 7
     Route: 065
     Dates: start: 20210723
  5. DAUNORUBICIN [Suspect]
     Active Substance: DAUNORUBICIN
     Indication: Acute myeloid leukaemia
     Dosage: SYATEMIC THERAPY ON DAY 1-DAY 3
     Route: 065
     Dates: start: 20210723
  6. METHYLPREDNISOLONE [Suspect]
     Active Substance: METHYLPREDNISOLONE
     Indication: Eosinophilic myocarditis
     Route: 065
  7. PREDNISONE [Suspect]
     Active Substance: PREDNISONE
     Indication: Eosinophilic myocarditis
     Route: 065

REACTIONS (5)
  - Haematemesis [Fatal]
  - Peptic ulcer [Fatal]
  - Eosinophilic myocarditis [Recovering/Resolving]
  - Left ventricular dysfunction [Recovering/Resolving]
  - Cardio-respiratory arrest [Recovered/Resolved]

NARRATIVE: CASE EVENT DATE: 20210725
